FAERS Safety Report 19289634 (Version 2)
Quarter: 2021Q3

REPORT INFORMATION
  Report Type: Spontaneous
  Country: US (occurrence: US)
  Receive Date: 20210521
  Receipt Date: 20210805
  Transmission Date: 20211014
  Serious: Yes (Other)
  Sender: FDA-Public Use
  Company Number: US-GILEAD-2021-0531965

PATIENT
  Age: 53 Year
  Sex: Male

DRUGS (8)
  1. VIREAD [Suspect]
     Active Substance: TENOFOVIR DISOPROXIL FUMARATE
     Indication: HIV INFECTION
     Dosage: UNK
     Route: 048
     Dates: start: 20020528, end: 20091112
  2. SYMTUZA [Concomitant]
     Active Substance: COBICISTAT\DARUNAVIR\EMTRICITABINE\TENOFOVIR ALAFENAMIDE
  3. COMPLERA [Suspect]
     Active Substance: EMTRICITABINE\RILPIVIRINE HYDROCHLORIDE\TENOFOVIR DISOPROXIL FUMARATE
     Indication: HIV INFECTION
     Route: 048
  4. TRUVADA [Suspect]
     Active Substance: EMTRICITABINE\TENOFOVIR DISOPROXIL FUMARATE
     Indication: HIV INFECTION
     Route: 048
  5. DESCOVY [Concomitant]
     Active Substance: EMTRICITABINE\TENOFOVIR ALAFENAMIDE FUMARATE
  6. BIKTARVY [Concomitant]
     Active Substance: BICTEGRAVIR SODIUM\EMTRICITABINE\TENOFOVIR ALAFENAMIDE FUMARATE
  7. ATRIPLA [Suspect]
     Active Substance: EFAVIRENZ\EMTRICITABINE\TENOFOVIR DISOPROXIL FUMARATE
     Indication: HIV INFECTION
     Dosage: UNK
     Route: 048
     Dates: start: 20091112, end: 20120628
  8. STRIBILD [Suspect]
     Active Substance: COBICISTAT\ELVITEGRAVIR\EMTRICITABINE\TENOFOVIR DISOPROXIL FUMARATE
     Indication: HIV INFECTION
     Route: 048

REACTIONS (11)
  - Tooth injury [Unknown]
  - Arthralgia [Not Recovered/Not Resolved]
  - Vitamin D deficiency [Not Recovered/Not Resolved]
  - Chronic kidney disease [Unknown]
  - Teeth brittle [Not Recovered/Not Resolved]
  - Tooth loss [Not Recovered/Not Resolved]
  - Renal injury [Unknown]
  - Bone density decreased [Unknown]
  - Blood creatinine increased [Not Recovered/Not Resolved]
  - Skeletal injury [Unknown]
  - Bone pain [Not Recovered/Not Resolved]

NARRATIVE: CASE EVENT DATE: 20131108
